FAERS Safety Report 17458626 (Version 3)
Quarter: 2020Q2

REPORT INFORMATION
  Report Type: Report from Study
  Country: US (occurrence: US)
  Receive Date: 20200225
  Receipt Date: 20200501
  Transmission Date: 20200713
  Serious: Yes (Death, Hospitalization)
  Sender: FDA-Public Use
  Company Number: US-ACTELION-A-US2019-198777

PATIENT
  Age: 53 Year
  Sex: Female
  Weight: 68.93 kg

DRUGS (4)
  1. OPSUMIT [Suspect]
     Active Substance: MACITENTAN
     Indication: PULMONARY ARTERIAL HYPERTENSION
     Dosage: 10 MG, QD
     Route: 048
  2. AMLODIPINE [Concomitant]
     Active Substance: AMLODIPINE BESYLATE
  3. UPTRAVI [Suspect]
     Active Substance: SELEXIPAG
     Dosage: 400 MCG, BID
     Route: 048
  4. UPTRAVI [Suspect]
     Active Substance: SELEXIPAG
     Indication: PULMONARY ARTERIAL HYPERTENSION
     Dosage: 200 MCG, BID
     Route: 048

REACTIONS (12)
  - Death [Fatal]
  - Lung disorder [Not Recovered/Not Resolved]
  - Pneumothorax [Unknown]
  - Ascites [Unknown]
  - Peripheral swelling [Unknown]
  - Abdominal distension [Unknown]
  - Pneumonia [Unknown]
  - Fluid retention [Unknown]
  - Hip fracture [Unknown]
  - Diarrhoea [Recovering/Resolving]
  - Fall [Recovered/Resolved]
  - Dyspnoea [Unknown]

NARRATIVE: CASE EVENT DATE: 20200212
